FAERS Safety Report 6189632-0 (Version None)
Quarter: 2009Q2

REPORT INFORMATION
  Report Type: 
  Country: None (occurrence: None)
  Receive Date: 20090512
  Receipt Date: 20090512
  Transmission Date: 20091009
  Serious: No
  Sender: FDA-Public Use
  Company Number: None

PATIENT
  Age: 2 Month
  Sex: Female
  Weight: 6.3504 kg

DRUGS (1)
  1. SODIUM CHLORIDE [Suspect]
     Indication: NASAL CONGESTION
     Dosage: 2 SPRAYS EA NOSTRIL 2 X DAY NASAL
     Route: 045
     Dates: start: 20090226, end: 20090510

REACTIONS (4)
  - BREATH ODOUR [None]
  - CRYING [None]
  - NASAL CONGESTION [None]
  - PRODUCT QUALITY ISSUE [None]
